FAERS Safety Report 10514577 (Version 4)
Quarter: 2014Q4

REPORT INFORMATION
  Report Type: Report from Study
  Country: JP (occurrence: JP)
  Receive Date: 20141013
  Receipt Date: 20141215
  Transmission Date: 20150528
  Serious: Yes (Hospitalization, Disabling)
  Sender: FDA-Public Use
  Company Number: JP-B.I. PHARMACEUTICALS,INC./RIDGEFIELD-2014-BI-47144NB

PATIENT
  Age: 56 Year
  Sex: Male
  Weight: 57.9 kg

DRUGS (4)
  1. URINORM [Suspect]
     Active Substance: BENZBROMARONE
     Indication: GOUT
     Dosage: 50 MG
     Route: 048
     Dates: start: 20130805, end: 20130819
  2. MAINHEART [Concomitant]
     Active Substance: BISOPROLOL FUMARATE
     Indication: PRODUCT USED FOR UNKNOWN INDICATION
     Dosage: 5 MG
     Route: 048
     Dates: start: 20120914, end: 20130917
  3. CILNIDIPINE [Concomitant]
     Active Substance: CILNIDIPINE
     Indication: PRODUCT USED FOR UNKNOWN INDICATION
     Dosage: 20 MG
     Route: 048
     Dates: start: 20120914, end: 20130917
  4. PRAZAXA [Suspect]
     Active Substance: DABIGATRAN ETEXILATE MESYLATE
     Indication: CEREBROVASCULAR ACCIDENT PROPHYLAXIS
     Dosage: 300 MG
     Route: 048
     Dates: start: 20120912, end: 20130917

REACTIONS (4)
  - Cerebral infarction [Recovered/Resolved with Sequelae]
  - Blood uric acid decreased [Unknown]
  - Gout [Recovered/Resolved]
  - Blood urea increased [Unknown]

NARRATIVE: CASE EVENT DATE: 20130805
